FAERS Safety Report 9372189 (Version 1)
Quarter: 2013Q2

REPORT INFORMATION
  Report Type: Report from Study
  Country: US (occurrence: US)
  Receive Date: 20130627
  Receipt Date: 20130627
  Transmission Date: 20140414
  Serious: Yes (Death)
  Sender: FDA-Public Use
  Company Number: US-MYLANLABS-2012S1016724

PATIENT
  Age: 53 Year
  Sex: Male

DRUGS (9)
  1. CLOZAPINE TABLETS [Suspect]
     Route: 048
     Dates: end: 20120712
  2. FERROUS SULFATE [Concomitant]
     Dates: end: 20120712
  3. ATIVAN [Concomitant]
     Dates: end: 20120712
  4. ZEBETA [Concomitant]
     Indication: BLOOD PRESSURE INCREASED
     Dates: end: 20120712
  5. LANOXIN [Concomitant]
     Dates: end: 20120712
  6. DEPAKENE [Concomitant]
     Dates: end: 20120712
  7. CARDIZEM [Concomitant]
     Dates: end: 20120712
  8. ROBINUL [Concomitant]
     Dates: end: 20120712
  9. PROVENTIL INHALER [Concomitant]
     Dates: end: 20120712

REACTIONS (1)
  - Pneumonia [Fatal]
